FAERS Safety Report 8143212-6 (Version None)
Quarter: 2012Q1

REPORT INFORMATION
  Report Type: 
  Country: None (occurrence: None)
  Receive Date: 20120217
  Receipt Date: 20120214
  Transmission Date: 20120608
  Serious: No
  Sender: FDA-Public Use
  Company Number: US-PFIZER INC-2012040926

PATIENT
  Sex: Female

DRUGS (6)
  1. CELEBREX [Suspect]
     Indication: NECK PAIN
     Dosage: 200 MG, DAILY
     Dates: start: 20120207
  2. CELEBREX [Suspect]
     Indication: PAIN IN EXTREMITY
  3. CELEBREX [Suspect]
     Indication: MUSCULOSKELETAL PAIN
  4. LEVOTHYROXINE [Concomitant]
     Indication: THYROID CANCER
     Dosage: 0.75 MG, DAILY
  5. CELEBREX [Suspect]
     Indication: BACK PAIN
  6. ACIPHEX [Concomitant]
     Indication: DYSPEPSIA
     Dosage: 20 MG, DAILY

REACTIONS (1)
  - DRUG INEFFECTIVE [None]
